FAERS Safety Report 7274701-4 (Version None)
Quarter: 2011Q1

REPORT INFORMATION
  Report Type: 
  Country: None (occurrence: None)
  Receive Date: 20110204
  Receipt Date: 20110126
  Transmission Date: 20110831
  Serious: Yes (Hospitalization)
  Sender: FDA-Public Use
  Company Number: CA-BRACCO-000310

PATIENT
  Sex: Female
  Weight: 68 kg

DRUGS (7)
  1. MULTIHANCE [Suspect]
     Indication: BLADDER CANCER
     Dosage: CONCENTRATION: 0.5M
     Route: 042
     Dates: start: 20110104, end: 20110104
  2. ANALGESICS [Concomitant]
  3. PROPOFOL [Concomitant]
     Indication: SEDATION
     Dosage: 0-40 ML/HR
     Route: 042
     Dates: start: 20110104, end: 20110105
  4. KETAMINE [Concomitant]
     Dosage: KETAMINE GIVEN THEN INTUBATED
     Route: 042
     Dates: start: 20110104, end: 20110104
  5. SCOPOLAMINE [Concomitant]
     Dates: start: 20110104, end: 20110104
  6. MULTIHANCE [Suspect]
     Indication: NUCLEAR MAGNETIC RESONANCE IMAGING
     Dosage: CONCENTRATION: 0.5M
     Route: 042
     Dates: start: 20110104, end: 20110104
  7. MORPHINE SULFATE [Concomitant]
     Indication: SEDATION
     Dosage: MIXED WITH 90 ML DSW, 0-10 MG/HR FOR LIGHT SEDATION
     Route: 042
     Dates: start: 20110104

REACTIONS (2)
  - CARDIO-RESPIRATORY ARREST [None]
  - ANAPHYLACTIC SHOCK [None]
